FAERS Safety Report 8495729-2 (Version None)
Quarter: 2012Q3

REPORT INFORMATION
  Report Type: 
  Country: None (occurrence: None)
  Receive Date: 20120709
  Receipt Date: 20120704
  Transmission Date: 20120928
  Serious: Yes (Death, Hospitalization)
  Sender: FDA-Public Use
  Company Number: JP-ABBOTT-12P-087-0889481-00

PATIENT
  Sex: Female
  Weight: 50.2 kg

DRUGS (12)
  1. CALCIUM LACTATE HYDRATE [Concomitant]
     Indication: OSTEOPOROSIS
     Dosage: 3 IN 1 DAY, AFTER EACH MEAL
     Route: 048
  2. MORPHINE HYDROCHLORIDE HYDRATE [Concomitant]
     Indication: PRODUCT USED FOR UNKNOWN INDICATION
     Dosage: 4 IN 1 DAY, EVERY SIX HOURS
     Route: 048
  3. TPN [Concomitant]
     Indication: CROHN'S DISEASE
     Dates: end: 20110605
  4. ALFACALCIDOL [Concomitant]
     Indication: OSTEOPOROSIS
     Dosage: DAILY, AFTER SUPPER
     Route: 048
  5. VITAMIN A [Concomitant]
     Indication: PRODUCT USED FOR UNKNOWN INDICATION
     Dosage: 3 IN 1 DAY, AFTER EACH MEAL
     Route: 048
  6. HUMIRA [Suspect]
     Dates: start: 20101213, end: 20101213
  7. LOPERAMIDE HCL [Concomitant]
     Indication: CROHN'S DISEASE
     Route: 048
  8. RANITIDINE HCL [Concomitant]
     Indication: PRODUCT USED FOR UNKNOWN INDICATION
     Dosage: 2 IN 1 DAY, AFTER BREAKFAST AND SUPPER
     Route: 048
  9. KANAMYCIN SULFATE [Concomitant]
     Indication: HEPATIC CIRRHOSIS
     Dosage: AFTER EACH MEAL AND BEFORE 4 IN 4 DAILY: AFTER MEALS AND BEFORE BEDTIME
     Route: 048
  10. POTASSIUM CHLORIDE [Concomitant]
     Indication: PRODUCT USED FOR UNKNOWN INDICATION
     Dosage: 2 IN 1 DAY, AFTER BREAKFAST AND SUPPER
     Route: 048
  11. HUMIRA [Suspect]
     Indication: CROHN'S DISEASE
     Route: 058
     Dates: start: 20101129, end: 20101129
  12. HUMIRA [Suspect]
     Dates: start: 20101228, end: 20110502

REACTIONS (3)
  - HEPATIC FAILURE [None]
  - OEDEMA [None]
  - HEPATIC CIRRHOSIS [None]
